FAERS Safety Report 7113277-9 (Version None)
Quarter: 2010Q4

REPORT INFORMATION
  Report Type: 
  Country: None (occurrence: None)
  Receive Date: 20101119
  Receipt Date: 20100602
  Transmission Date: 20110411
  Serious: No
  Sender: FDA-Public Use
  Company Number: A0862442A

PATIENT
  Age: 50 Year
  Sex: Male

DRUGS (23)
  1. BUPROPION HYDROCHLORIDE [Suspect]
     Indication: DEPRESSION
     Dosage: 200MG TWICE PER DAY
     Route: 048
     Dates: start: 20060601
  2. ASPIRIN [Concomitant]
  3. BONIVA [Concomitant]
  4. CALCIUM [Concomitant]
  5. VITAMIN D [Concomitant]
  6. SYNTHROID [Concomitant]
  7. LIPITOR [Concomitant]
  8. LOPRESSOR [Concomitant]
  9. METOPROLOL [Concomitant]
  10. ALLEGRA D 24 HOUR [Concomitant]
  11. NASONEX [Concomitant]
  12. LORATADINE [Concomitant]
  13. FLUTICASONE NASAL SPRAY [Concomitant]
  14. PLAVIX [Concomitant]
  15. PLETAL [Concomitant]
  16. SOMA [Concomitant]
  17. LIDODERM [Concomitant]
  18. NICOTINE [Concomitant]
  19. OXYCONTIN [Concomitant]
  20. OXYCODONE HCL [Concomitant]
  21. AMBIEN [Concomitant]
  22. XANAX [Concomitant]
  23. CLONAZEPAM [Concomitant]

REACTIONS (1)
  - DRUG INEFFECTIVE [None]
